FAERS Safety Report 11537531 (Version 2)
Quarter: 2015Q4

REPORT INFORMATION
  Report Type: Other
  Country: GB (occurrence: GB)
  Receive Date: 20150922
  Receipt Date: 20151015
  Transmission Date: 20160304
  Serious: Yes (Hospitalization, Other)
  Sender: FDA-Public Use
  Company Number: GB-APOTEX-2015AP012663

PATIENT

DRUGS (20)
  1. PAROXETINE [Suspect]
     Active Substance: PAROXETINE\PAROXETINE HYDROCHLORIDE
     Indication: PRODUCT USED FOR UNKNOWN INDICATION
     Dosage: 50 MG, Q.AM
     Route: 065
  2. MONTELUKAST [Suspect]
     Active Substance: MONTELUKAST SODIUM
     Indication: PRODUCT USED FOR UNKNOWN INDICATION
     Dosage: 10 MG, Q.H.S.
     Route: 065
  3. HYOSCINE HYDROBROMIDE [Suspect]
     Active Substance: SCOPOLAMINE
     Dosage: 3150 ?G, UNK
     Route: 065
  4. ZAPONEX [Suspect]
     Active Substance: CLOZAPINE
     Dosage: UNK
     Route: 048
     Dates: start: 20150727, end: 201509
  5. MONTELUKAST [Suspect]
     Active Substance: MONTELUKAST SODIUM
     Dosage: 70 MG, UNK
     Route: 065
  6. FERROUS FUMARATE [Suspect]
     Active Substance: FERROUS FUMARATE
     Dosage: 2940 MG, UNK
     Route: 065
  7. LANSOPRAZOLE. [Suspect]
     Active Substance: LANSOPRAZOLE
     Indication: PRODUCT USED FOR UNKNOWN INDICATION
     Dosage: 30 MG, BID
     Route: 065
  8. LANSOPRAZOLE. [Suspect]
     Active Substance: LANSOPRAZOLE
     Dosage: 420 MG, UNK
     Route: 065
  9. PRIADEL                            /00033702/ [Suspect]
     Active Substance: LITHIUM CARBONATE
     Indication: PRODUCT USED FOR UNKNOWN INDICATION
     Dosage: 1000 MG, Q.H.S.
     Route: 065
  10. FERROUS FUMARATE [Suspect]
     Active Substance: FERROUS FUMARATE
     Indication: PRODUCT USED FOR UNKNOWN INDICATION
     Dosage: 210 MG, BID
     Route: 065
  11. FLUCONAZOLE. [Suspect]
     Active Substance: FLUCONAZOLE
     Dosage: 150 MG, UNK
     Route: 065
  12. FLUCONAZOLE. [Suspect]
     Active Substance: FLUCONAZOLE
     Indication: PRODUCT USED FOR UNKNOWN INDICATION
     Dosage: 150 MG, Q.WK.
     Route: 065
  13. PRIADEL                            /00033702/ [Suspect]
     Active Substance: LITHIUM CARBONATE
     Dosage: 7000 MG, UNK
     Route: 065
  14. ZAPONEX [Suspect]
     Active Substance: CLOZAPINE
     Dosage: 2625 MG, UNK
     Route: 048
     Dates: start: 20150723, end: 20150723
  15. PAROXETINE [Suspect]
     Active Substance: PAROXETINE\PAROXETINE HYDROCHLORIDE
     Dosage: 350 MG, UNK
     Route: 065
  16. FOLIC ACID. [Suspect]
     Active Substance: FOLIC ACID
     Dosage: 35 MG, UNK
     Route: 065
  17. FOLIC ACID. [Suspect]
     Active Substance: FOLIC ACID
     Indication: PRODUCT USED FOR UNKNOWN INDICATION
     Dosage: 5 MG, Q.AM
     Route: 065
  18. HYOSCINE HYDROBROMIDE [Suspect]
     Active Substance: SCOPOLAMINE
     Indication: PRODUCT USED FOR UNKNOWN INDICATION
     Dosage: 450 ?G, Q.H.S.
     Route: 065
  19. ZAPONEX [Suspect]
     Active Substance: CLOZAPINE
     Indication: PRODUCT USED FOR UNKNOWN INDICATION
     Dosage: 50MG IN THE MORNING, 150MG IN THE EVENING, 175MG AT NIGHT
     Route: 048
     Dates: start: 20131024, end: 20150722
  20. FOSTAIR [Suspect]
     Active Substance: BECLOMETHASONE\FORMOTEROL
     Indication: PRODUCT USED FOR UNKNOWN INDICATION
     Dosage: 2 PUFFS TWICE DAILY
     Route: 065

REACTIONS (4)
  - Fatigue [Unknown]
  - Intentional overdose [Recovered/Resolved]
  - Overdose [Recovered/Resolved]
  - Mental impairment [Recovered/Resolved]

NARRATIVE: CASE EVENT DATE: 20150723
